FAERS Safety Report 16341111 (Version 1)
Quarter: 2019Q2

REPORT INFORMATION
  Report Type: Spontaneous
  Country: DK (occurrence: DK)
  Receive Date: 20190522
  Receipt Date: 20190522
  Transmission Date: 20190711
  Serious: Yes (Death, Hospitalization)
  Sender: FDA-Public Use
  Company Number: DK-INSYS THERAPEUTICS, INC-INS201905-000362

PATIENT
  Sex: Male

DRUGS (5)
  1. BENZODIAZEPINES [Suspect]
     Active Substance: BENZODIAZEPINE
  2. FENTANYL. [Suspect]
     Active Substance: FENTANYL
     Indication: PRODUCT USED FOR UNKNOWN INDICATION
  3. METHOXYACETYLFENTANYL [Suspect]
     Active Substance: METHOXYACETYLFENTANYL
  4. AMPHETAMINE [Suspect]
     Active Substance: AMPHETAMINE
  5. OXYCODONE [Suspect]
     Active Substance: OXYCODONE

REACTIONS (1)
  - Toxicity to various agents [Fatal]
